FAERS Safety Report 5147314-8 (Version None)
Quarter: 2006Q4

REPORT INFORMATION
  Report Type: 
  Country: None (occurrence: None)
  Receive Date: 20061103
  Receipt Date: 20061020
  Transmission Date: 20070319
  Serious: Yes (Other)
  Sender: FDA-Public Use
  Company Number: CIP06002494

PATIENT
  Age: 61 Year

DRUGS (9)
  1. ASACOL [Suspect]
     Indication: COLITIS ULCERATIVE
     Dosage: 1200 MG TWICE DAILY; ORAL
     Route: 048
     Dates: start: 19990101, end: 20060901
  2. DIOVAN [Concomitant]
  3. ACYCLOVIR [Concomitant]
  4. DIOVAN [Concomitant]
  5. PREMARIN [Concomitant]
  6. SYNTHROID [Concomitant]
  7. ACYCLOVIR [Concomitant]
  8. SYNTHROID [Concomitant]
  9. PREMARIN [Concomitant]

REACTIONS (3)
  - HAEMOPTYSIS [None]
  - LUNG INFILTRATION [None]
  - PNEUMONITIS [None]
